FAERS Safety Report 4791128-5 (Version None)
Quarter: 2005Q4

REPORT INFORMATION
  Report Type: 
  Country: None (occurrence: None)
  Receive Date: 20051005
  Receipt Date: 20050919
  Transmission Date: 20060501
  Serious: Yes (Death, Hospitalization, Other)
  Sender: FDA-Public Use
  Company Number: ERD2002A00101

PATIENT
  Age: 68 Year
  Sex: Female

DRUGS (12)
  1. PIOGLITAZONE HCL [Suspect]
     Indication: DIABETES MELLITUS NON-INSULIN-DEPENDENT
     Dosage: SEE IMAGE
     Route: 048
     Dates: start: 20020417, end: 20020613
  2. PIOGLITAZONE HCL [Suspect]
     Indication: DIABETES MELLITUS NON-INSULIN-DEPENDENT
     Dosage: SEE IMAGE
     Route: 048
     Dates: start: 20020614, end: 20020628
  3. PIOGLITAZONE HCL [Suspect]
     Indication: DIABETES MELLITUS NON-INSULIN-DEPENDENT
     Dosage: SEE IMAGE
     Route: 048
     Dates: start: 20020717, end: 20030107
  4. INSULIN (INSULIN /N/A/) [Concomitant]
  5. NOVONORM (REPAGLINIDE) [Concomitant]
  6. METFORMIN (METFORMIN) [Concomitant]
  7. MONOPRIL [Concomitant]
  8. INDAPAMIDE [Concomitant]
  9. AMITRIPTYLINI (AMITRIPTYLINE) [Concomitant]
  10. TORESAMIDI (TORASEMIDE) [Concomitant]
  11. SPIRONOLACTONI (SPIRONOLACTONE) [Concomitant]
  12. ASPIRIN [Concomitant]

REACTIONS (3)
  - CARDIAC FAILURE ACUTE [None]
  - CONDITION AGGRAVATED [None]
  - PULMONARY OEDEMA [None]
